FAERS Safety Report 9159354 (Version 2)
Quarter: 2013Q1

REPORT INFORMATION
  Report Type: Spontaneous
  Country: US (occurrence: None)
  Receive Date: 20130213
  Receipt Date: 20130305
  Transmission Date: 20140127
  Serious: Yes (Other)
  Sender: FDA-Public Use
  Company Number: AUR-APL-2013-01288

PATIENT
  Age: 51 Year
  Sex: Male
  Weight: 81.63 kg

DRUGS (5)
  1. VENLAFAXINE [Suspect]
     Indication: DEPRESSION
  2. MELOXICAM [Suspect]
  3. PRISTIQ [Suspect]
  4. GABAPENTIN (GABAPENTIN) [Suspect]
  5. BACLOFEN (BACLOFEN) [Concomitant]

REACTIONS (4)
  - Headache [None]
  - Hearing impaired [None]
  - Euphoric mood [None]
  - Visual impairment [None]
